FAERS Safety Report 9434846 (Version 2)
Quarter: 2013Q3

REPORT INFORMATION
  Report Type: Spontaneous
  Country: US (occurrence: US)
  Receive Date: 20130801
  Receipt Date: 20130930
  Transmission Date: 20140515
  Serious: Yes (Death)
  Sender: FDA-Public Use
  Company Number: US-JNJFOC-20130717922

PATIENT
  Age: 43 Year
  Sex: Male

DRUGS (6)
  1. CLADRIBINE [Suspect]
     Indication: PLASMA CELL MYELOMA
     Dosage: FOR 5 DAYS
     Route: 042
  2. THIOTEPA [Suspect]
     Indication: PLASMA CELL MYELOMA
     Route: 042
  3. THIOTEPA [Suspect]
     Indication: PLASMA CELL MYELOMA
     Dosage: FOR 3 DAYS
     Route: 042
  4. RABBIT ANTITHYMOCYTE GLOBULIN [Suspect]
     Indication: PLASMA CELL MYELOMA
     Dosage: DAY -5
     Route: 065
  5. GRANULOCYTE COLONY STIMULATING FACTOR [Concomitant]
     Indication: PRODUCT USED FOR UNKNOWN INDICATION
     Route: 065
  6. CYCLOSPORINE [Concomitant]
     Indication: IMMUNOSUPPRESSION
     Dosage: 2.5 MG/KG ON DAY -1, THEN 1.5 MG/KG
     Route: 042

REACTIONS (5)
  - Plasma cell myeloma [Fatal]
  - Off label use [Unknown]
  - Thrombocytopenia [Unknown]
  - Anaemia [Unknown]
  - Neutropenia [Unknown]
